FAERS Safety Report 14338300 (Version 1)
Quarter: 2017Q4

REPORT INFORMATION
  Report Type: Spontaneous
  Country: SI (occurrence: SI)
  Receive Date: 20171229
  Receipt Date: 20171229
  Transmission Date: 20180321
  Serious: Yes (Death, Life-Threatening, Hospitalization, Other)
  Sender: FDA-Public Use
  Company Number: SI-SA-2017SA263973

PATIENT
  Age: 84 Year
  Sex: Female

DRUGS (1)
  1. PLAVIX [Suspect]
     Active Substance: CLOPIDOGREL BISULFATE
     Indication: CORONARY ARTERY STENOSIS
     Route: 048

REACTIONS (5)
  - Aspiration [Fatal]
  - Multiple organ dysfunction syndrome [Fatal]
  - Altered state of consciousness [Fatal]
  - Acute respiratory distress syndrome [Fatal]
  - Status epilepticus [Fatal]

NARRATIVE: CASE EVENT DATE: 2017
